FAERS Safety Report 20333413 (Version 1)
Quarter: 2022Q1

REPORT INFORMATION
  Report Type: Spontaneous
  Country: US (occurrence: US)
  Receive Date: 20220113
  Receipt Date: 20220113
  Transmission Date: 20220423
  Serious: No
  Sender: FDA-Public Use
  Company Number: US-PFIZER INC-202101647283

PATIENT
  Age: 61 Year
  Sex: Female

DRUGS (1)
  1. ZYVOX [Suspect]
     Active Substance: LINEZOLID
     Dosage: 600 MG, 2X/DAY, (100 MG/5ML 30 ML )
     Route: 048

REACTIONS (3)
  - Hyponatraemia [Unknown]
  - Off label use [Unknown]
  - Product use issue [Unknown]
